FAERS Safety Report 7437503-1 (Version None)
Quarter: 2011Q2

REPORT INFORMATION
  Report Type: 
  Country: None (occurrence: None)
  Receive Date: 20110426
  Receipt Date: 20110421
  Transmission Date: 20111010
  Serious: Yes (Death, Hospitalization, Other)
  Sender: FDA-Public Use
  Company Number: PHFR2011GB01054

PATIENT
  Sex: Male

DRUGS (1)
  1. CLOZARIL [Suspect]
     Indication: SCHIZOPHRENIA
     Dosage: UNK
     Route: 048
     Dates: start: 19970204

REACTIONS (5)
  - LUNG CANCER METASTATIC [None]
  - PROSTATISM [None]
  - CONFUSIONAL STATE [None]
  - HEPATIC NEOPLASM [None]
  - ADRENAL NEOPLASM [None]
